FAERS Safety Report 13028122 (Version 1)
Quarter: 2016Q4

REPORT INFORMATION
  Report Type: Report from Study
  Country: BE (occurrence: BE)
  Receive Date: 20161214
  Receipt Date: 20161214
  Transmission Date: 20170207
  Serious: Yes (Other)
  Sender: FDA-Public Use
  Company Number: BE-JNJFOC-20161210824

PATIENT

DRUGS (2)
  1. ITRACONAZOLE. [Suspect]
     Active Substance: ITRACONAZOLE
     Indication: PRODUCT USED FOR UNKNOWN INDICATION
     Dosage: FROM DAYS 5-11 WITH A FULL MEAL (EXCEPT FOR THE DOSE ON DAY 9)
     Route: 065
  2. OLAPARIB [Interacting]
     Active Substance: OLAPARIB
     Indication: PRODUCT USED FOR UNKNOWN INDICATION
     Dosage: ON DAY 1 AFTER 10 HOURS OF FAST
     Route: 048

REACTIONS (12)
  - Anaemia [Unknown]
  - Fatigue [Unknown]
  - Vomiting [Unknown]
  - Nausea [Unknown]
  - Hypokalaemia [Unknown]
  - Dyspepsia [Unknown]
  - Urinary tract obstruction [Unknown]
  - Drug interaction [Unknown]
  - Back pain [Unknown]
  - Adverse event [Unknown]
  - Pain in extremity [Unknown]
  - Insomnia [Unknown]
